FAERS Safety Report 9835586 (Version 3)
Quarter: 2016Q1

REPORT INFORMATION
  Report Type: Spontaneous
  Country: CN (occurrence: CN)
  Receive Date: 20140122
  Receipt Date: 20160210
  Transmission Date: 20160526
  Serious: Yes (Hospitalization)
  Sender: FDA-Public Use
  Company Number: PHHY2014CN005816

PATIENT
  Age: 22 Year
  Sex: Male

DRUGS (1)
  1. TELBIVUDINE [Suspect]
     Active Substance: TELBIVUDINE
     Indication: CHRONIC HEPATITIS B
     Dosage: 600 MG, PER DAY
     Route: 048

REACTIONS (13)
  - Myalgia [Recovering/Resolving]
  - Vomiting [Recovering/Resolving]
  - Mental status changes [Unknown]
  - Myopathy [Recovered/Resolved]
  - Muscular weakness [Not Recovered/Not Resolved]
  - Lactic acidosis [Recovered/Resolved]
  - Palpitations [Recovering/Resolving]
  - Urine output decreased [Unknown]
  - Fatigue [Recovering/Resolving]
  - Nausea [Recovering/Resolving]
  - Asthenia [Not Recovered/Not Resolved]
  - Muscle swelling [Recovering/Resolving]
  - Neuropathy peripheral [Recovered/Resolved]
